FAERS Safety Report 10979024 (Version 1)
Quarter: 2015Q1

REPORT INFORMATION
  Report Type: Spontaneous
  Country: US (occurrence: None)
  Receive Date: 20150227
  Receipt Date: 20150227
  Transmission Date: 20150721
  Serious: Yes (Hospitalization)
  Sender: FDA-Public Use
  Company Number: OMPQ-PR-1401S-0090

PATIENT
  Age: 58 Year
  Sex: Male

DRUGS (6)
  1. NITROGLYCERIN (GLYCEYL TRINITRATE) [Concomitant]
  2. INTEGRILIN [Concomitant]
     Active Substance: EPTIFIBATIDE
  3. OMNIPAQUE [Suspect]
     Active Substance: IOHEXOL
     Indication: PULMONARY EMBOLISM
     Dosage: DOSE NOT REPORTED, SINGLE
     Route: 042
     Dates: start: 20130607, end: 20130607
  4. HEPARIN [Concomitant]
     Active Substance: HEPARIN SODIUM
  5. OMNIPAQUE [Suspect]
     Active Substance: IOHEXOL
     Indication: DIAGNOSTIC PROCEDURE
     Dosage: DOSE NOT REPORTED, SINGLE
     Route: 042
     Dates: start: 20130607, end: 20130607
  6. DILAUDID [Concomitant]
     Active Substance: HYDROMORPHONE HYDROCHLORIDE

REACTIONS (2)
  - Chest pain [None]
  - Anaphylactic shock [None]

NARRATIVE: CASE EVENT DATE: 20130607
